FAERS Safety Report 24917320 (Version 1)
Quarter: 2025Q1

REPORT INFORMATION
  Report Type: Spontaneous
  Country: US (occurrence: None)
  Receive Date: 20250202
  Receipt Date: 20250202
  Transmission Date: 20250409
  Serious: No
  Sender: FDA-CTU
  Company Number: None

PATIENT
  Age: 57 Year
  Sex: Female
  Weight: 60.75 kg

DRUGS (6)
  1. XIIDRA [Suspect]
     Active Substance: LIFITEGRAST
     Indication: Dry eye
     Dosage: OTHER QUANTITY : 2 DROP(S)?FREQUENCY : TWICE A DAY?
     Route: 047
     Dates: start: 20250117, end: 20250125
  2. DGL Plus by Pure Encapsulations [Concomitant]
  3. O.N.E. Multivitamin by Pure Encapsulations [Concomitant]
  4. Magnesium glycinate by Trace Minerals [Concomitant]
  5. Algae Based Calcium by Heinens SBO [Concomitant]
  6. Probiotics Gut Restore by Ancient Nutrition [Concomitant]

REACTIONS (2)
  - Urticaria [None]
  - Rash [None]

NARRATIVE: CASE EVENT DATE: 20250121
